FAERS Safety Report 5596712-7 (Version None)
Quarter: 2008Q1

REPORT INFORMATION
  Report Type: 
  Country: None (occurrence: None)
  Receive Date: 20080118
  Receipt Date: 20080109
  Transmission Date: 20080703
  Serious: Yes (Hospitalization)
  Sender: FDA-Public Use
  Company Number: FR-PFIZER INC-2008002909

PATIENT
  Sex: Female

DRUGS (8)
  1. ZYVOXID TABLET [Suspect]
     Indication: ARTHRITIS BACTERIAL
     Dosage: TEXT:2DF
     Route: 048
     Dates: start: 20070314, end: 20070416
  2. TRIFLUCAN [Suspect]
     Indication: CANDIDIASIS
     Route: 048
     Dates: start: 20070314, end: 20070417
  3. LOVENOX [Suspect]
     Indication: PROPHYLAXIS
     Dosage: TEXT:1DF
     Route: 058
     Dates: start: 20070304, end: 20070414
  4. LASIX [Concomitant]
     Route: 048
  5. ATARAX [Concomitant]
     Route: 048
  6. MONICOR [Concomitant]
     Route: 048
  7. DOLIPRANE [Concomitant]
     Route: 048
  8. SERESTA [Concomitant]
     Route: 048

REACTIONS (3)
  - ANAEMIA [None]
  - NEUTROPENIA [None]
  - THROMBOCYTOPENIA [None]
